FAERS Safety Report 9922267 (Version 1)
Quarter: 2014Q1

REPORT INFORMATION
  Report Type: Spontaneous
  Country: US (occurrence: None)
  Receive Date: 20140224
  Receipt Date: 20140224
  Transmission Date: 20141002
  Serious: Yes (Other)
  Sender: FDA-Public Use
  Company Number: None

PATIENT
  Age: 15 Year
  Sex: Female
  Weight: 54.43 kg

DRUGS (2)
  1. LAMOTRIGINE ER [Suspect]
     Dosage: 1 QAM
     Route: 048
     Dates: start: 20130509
  2. LEVETIRACETAM 500MG [Concomitant]

REACTIONS (1)
  - Rash generalised [None]
